FAERS Safety Report 14962530 (Version 1)
Quarter: 2018Q2

REPORT INFORMATION
  Report Type: Spontaneous
  Country: US (occurrence: US)
  Receive Date: 20180601
  Receipt Date: 20180601
  Transmission Date: 20180711
  Serious: No
  Sender: FDA-Public Use
  Company Number: US-PFIZER INC-2018223689

PATIENT
  Age: 2 Year
  Sex: Male

DRUGS (1)
  1. EUCRISA [Suspect]
     Active Substance: CRISABOROLE
     Indication: ECZEMA
     Dosage: UNK, 2X/DAY, (APPLIED TWICE A DAY)
     Route: 061
     Dates: start: 201802

REACTIONS (3)
  - Application site pain [Unknown]
  - Application site warmth [Unknown]
  - Application site joint swelling [Unknown]

NARRATIVE: CASE EVENT DATE: 201805
